FAERS Safety Report 9745109 (Version 1)
Quarter: 2013Q4

REPORT INFORMATION
  Report Type: Spontaneous
  Country: CA (occurrence: CA)
  Receive Date: 20131211
  Receipt Date: 20131211
  Transmission Date: 20140711
  Serious: Yes (Hospitalization, Other)
  Sender: FDA-Public Use
  Company Number: CA-ROCHE-1314972

PATIENT
  Age: 82 Year
  Sex: Male
  Weight: 97 kg

DRUGS (8)
  1. NAPROXEN [Suspect]
     Indication: PRODUCT USED FOR UNKNOWN INDICATION
     Route: 048
  2. FISH OIL [Interacting]
     Indication: PRODUCT USED FOR UNKNOWN INDICATION
     Dosage: DOSE: 1.0 DOSAGE FORM
     Route: 048
  3. ZOLADEX LA [Interacting]
     Indication: PRODUCT USED FOR UNKNOWN INDICATION
     Dosage: THERAPY DURATION: 2.0 DAYS
     Route: 058
  4. FINASTERIDE [Concomitant]
     Route: 048
  5. SIMVASTATIN [Concomitant]
     Route: 059
  6. SIMVASTATIN [Concomitant]
     Route: 048
  7. TYLENOL WITH CODEINE [Concomitant]
     Route: 065
  8. TYLENOL [Concomitant]

REACTIONS (7)
  - Abdominal distension [Not Recovered/Not Resolved]
  - Contusion [Not Recovered/Not Resolved]
  - Haemoglobin decreased [Not Recovered/Not Resolved]
  - Pneumonia [Not Recovered/Not Resolved]
  - Drug interaction [Unknown]
  - Haematoma [Not Recovered/Not Resolved]
  - Intra-abdominal haematoma [Not Recovered/Not Resolved]
